FAERS Safety Report 22273852 (Version 8)
Quarter: 2025Q4

REPORT INFORMATION
  Report Type: Report from Study
  Country: US (occurrence: US)
  Receive Date: 20230502
  Receipt Date: 20251218
  Transmission Date: 20260118
  Serious: Yes (Hospitalization, Other)
  Sender: TAKEDA
  Company Number: US-PAREXEL-2021-KAM-US003608

PATIENT
  Age: 64 Year
  Sex: Female
  Weight: 101 kg

DRUGS (47)
  1. GLASSIA [Suspect]
     Active Substance: .ALPHA.1-PROTEINASE INHIBITOR HUMAN
     Indication: Alpha-1 antitrypsin deficiency
     Dosage: 60 MILLIGRAM/KILOGRAM, 1/WEEK
  2. GLASSIA [Suspect]
     Active Substance: .ALPHA.1-PROTEINASE INHIBITOR HUMAN
  3. OXYGEN [Suspect]
     Active Substance: OXYGEN
     Indication: Product used for unknown indication
     Dosage: UNK
  4. EPINEPHRINE [Concomitant]
     Active Substance: EPINEPHRINE
     Dosage: UNK
  5. HEPARIN [Concomitant]
     Active Substance: HEPARIN SODIUM
     Dosage: UNK
  6. DIPHENHYDRAMINE [Concomitant]
     Active Substance: DIPHENHYDRAMINE
     Dosage: UNK
  7. LIDOCAINE\PRILOCAINE [Concomitant]
     Active Substance: LIDOCAINE\PRILOCAINE
     Dosage: UNK
  8. SODIUM CHLORIDE [Concomitant]
     Active Substance: SODIUM CHLORIDE
     Dosage: UNK
  9. SHINGRIX [Concomitant]
     Active Substance: RECOMBINANT VARICELLA ZOSTER VIRUS (VZV) GLYCOPROTEIN E
     Dosage: UNK
  10. VICKS DAYQUIL [Concomitant]
     Active Substance: DEXTROMETHORPHAN HYDROBROMIDE\GUAIFENESIN
     Dosage: UNK
  11. VICKS NYQUIL [Concomitant]
     Active Substance: ACETAMINOPHEN\DEXTROMETHORPHAN HYDROBROMIDE\DOXYLAMINE SUCCINATE
     Dosage: UNK
  12. FISH OIL [Concomitant]
     Active Substance: FISH OIL
     Dosage: UNK
  13. MUCINEX [Concomitant]
     Active Substance: GUAIFENESIN
     Dosage: UNK
  14. HYDROCHLOROTHIAZIDE [Concomitant]
     Active Substance: HYDROCHLOROTHIAZIDE
     Dosage: UNK
  15. PROAIR HFA [Concomitant]
     Active Substance: ALBUTEROL SULFATE
     Dosage: UNK
  16. BIOTIN [Concomitant]
     Active Substance: BIOTIN
     Dosage: UNK
  17. SPIRIVA RESPIMAT [Concomitant]
     Active Substance: TIOTROPIUM BROMIDE
     Dosage: UNK
  18. HUMALOG [Concomitant]
     Active Substance: INSULIN LISPRO
     Dosage: UNK
  19. LIPITOR [Concomitant]
     Active Substance: ATORVASTATIN CALCIUM
     Dosage: UNK
  20. LISINOPRIL [Concomitant]
     Active Substance: LISINOPRIL
     Dosage: UNK
  21. ASPIRIN [Concomitant]
     Active Substance: ASPIRIN
     Dosage: UNK
  22. AMLODIPINE BESYLATE [Concomitant]
     Active Substance: AMLODIPINE BESYLATE
     Dosage: UNK
  23. DOXAZOSIN MESYLATE [Concomitant]
     Active Substance: DOXAZOSIN MESYLATE
     Dosage: UNK
  24. METFORMIN HYDROCHLORIDE [Concomitant]
     Active Substance: METFORMIN HYDROCHLORIDE
     Dosage: UNK
  25. MAGNESIUM [Concomitant]
     Active Substance: MAGNESIUM
     Dosage: UNK
  26. ADVAIR HFA [Concomitant]
     Active Substance: FLUTICASONE PROPIONATE\SALMETEROL XINAFOATE
     Dosage: UNK
  27. PFIZER-BIONTECH COVID-19 VACCINE [Concomitant]
     Active Substance: TOZINAMERAN
     Dosage: UNK
  28. PNEUMOVAX 23 [Concomitant]
     Active Substance: PNEUMOCOCCAL VACCINE, POLYVALENT 23
     Dosage: UNK
  29. FLUARIX QUADRIVALENT [Concomitant]
     Active Substance: INFLUENZA VIRUS VACCINE
     Dosage: UNK
  30. PRIMIDONE [Concomitant]
     Active Substance: PRIMIDONE
     Dosage: UNK
  31. VITAMIN C [Concomitant]
     Active Substance: ASCORBIC ACID
     Dosage: UNK
  32. VITAMIN D3 [Concomitant]
     Active Substance: CHOLECALCIFEROL
     Dosage: UNK
  33. OZURDEX [Concomitant]
     Active Substance: DEXAMETHASONE
     Dosage: UNK
  34. LEVEMIR [Concomitant]
     Active Substance: INSULIN DETEMIR
     Dosage: UNK
  35. FLUARIX NOS [Concomitant]
     Active Substance: INFLUENZA VIRUS VACCINE
     Dosage: UNK
  36. CODEINE GUAIFENESIN [Concomitant]
     Active Substance: CODEINE PHOSPHATE\GUAIFENESIN
     Dosage: UNK
  37. PROAIR RESPICLICK [Concomitant]
     Active Substance: ALBUTEROL SULFATE
     Dosage: UNK
  38. SPIRIVA [Concomitant]
     Active Substance: TIOTROPIUM BROMIDE MONOHYDRATE
     Dosage: UNK
  39. CYCLOBENZAPRINE HYDROCHLORIDE [Concomitant]
     Active Substance: CYCLOBENZAPRINE HYDROCHLORIDE
     Dosage: UNK
  40. OXYCODONE HYDROCHLORIDE [Concomitant]
     Active Substance: OXYCODONE HYDROCHLORIDE
     Dosage: UNK
  41. ASPIRIN [Concomitant]
     Active Substance: ASPIRIN
     Dosage: UNK
  42. DIPHENHYDRAMINE HYDROCHLORIDE [Concomitant]
     Active Substance: DIPHENHYDRAMINE HYDROCHLORIDE
     Dosage: UNK
  43. Fluzone High Dose Quadrivalent [Concomitant]
     Dosage: UNK
  44. INSULIN DEGLUDEC [Concomitant]
     Active Substance: INSULIN DEGLUDEC
     Dosage: UNK
  45. MODERNA COVID-19 VACCINE [Concomitant]
     Active Substance: ELASOMERAN
     Dosage: UNK
  46. AZITHROMYCIN [Concomitant]
     Active Substance: AZITHROMYCIN
     Dosage: UNK
  47. MIEBO [Concomitant]
     Active Substance: PERFLUOROHEXYLOCTANE
     Dosage: UNK

REACTIONS (18)
  - Nephrolithiasis [Unknown]
  - Infection [Unknown]
  - Urinary tract infection [Unknown]
  - Nasal congestion [Unknown]
  - Productive cough [Unknown]
  - Musculoskeletal chest pain [Unknown]
  - Procedural pain [Unknown]
  - Skin laceration [Unknown]
  - Flank pain [Recovered/Resolved]
  - Chromaturia [Unknown]
  - Escherichia infection [Unknown]
  - Urine output decreased [Recovered/Resolved]
  - Nasopharyngitis [Recovered/Resolved]
  - Abdominal pain [Unknown]
  - Cough [Not Recovered/Not Resolved]
  - Fatigue [Recovered/Resolved]
  - Headache [Unknown]
  - Post procedural swelling [Unknown]

NARRATIVE: CASE EVENT DATE: 20250824
